FAERS Safety Report 9035978 (Version 1)
Quarter: 2013Q1

REPORT INFORMATION
  Report Type: Spontaneous
  Country: US (occurrence: US)
  Receive Date: 20130129
  Receipt Date: 20130129
  Transmission Date: 20140127
  Serious: No
  Sender: FDA-Public Use
  Company Number: US-ABBOTT-12P-163-0915965-00

PATIENT
  Sex: Female
  Weight: 64.92 kg

DRUGS (2)
  1. HUMIRA 40 MG/0.8 ML PEN [Suspect]
     Indication: CROHN^S DISEASE
     Route: 058
     Dates: start: 201108, end: 201202
  2. LIALDA [Concomitant]
     Indication: CROHN^S DISEASE

REACTIONS (4)
  - Lupus-like syndrome [Not Recovered/Not Resolved]
  - Oedema peripheral [Recovering/Resolving]
  - Influenza like illness [Not Recovered/Not Resolved]
  - Crohn^s disease [Not Recovered/Not Resolved]
